FAERS Safety Report 6124225-2 (Version None)
Quarter: 2009Q1

REPORT INFORMATION
  Report Type: 
  Country: None (occurrence: None)
  Receive Date: 20090319
  Receipt Date: 20090309
  Transmission Date: 20090719
  Serious: Yes (Life-Threatening)
  Sender: FDA-Public Use
  Company Number: DE-WATSON-2009-01584

PATIENT
  Age: 75 Year
  Sex: Female

DRUGS (2)
  1. DOBUTAMINE HCL [Suspect]
     Indication: LEFT VENTRICULAR DYSFUNCTION
     Dosage: 8.83 UG/KG/MIN, CONTINUOUS
     Route: 042
     Dates: start: 20080101
  2. EPINEPHRINE [Suspect]
     Indication: LEFT VENTRICULAR DYSFUNCTION
     Dosage: 1.94 UG/KG/MIN, CONTINUOUS
     Route: 042
     Dates: start: 20080101

REACTIONS (1)
  - STRESS CARDIOMYOPATHY [None]
